FAERS Safety Report 8879849 (Version 2)
Quarter: 2014Q2

REPORT INFORMATION
  Report Type: Spontaneous
  Country: ES (occurrence: ES)
  Receive Date: 20121031
  Receipt Date: 20131120
  Transmission Date: 20141212
  Serious: Yes (Other)
  Sender: FDA-Public Use
  Company Number: ES-TEVA-366881ISR

PATIENT
  Age: 80 Year
  Sex: Female

DRUGS (2)
  1. CARBOPLATINO TEVA 10MG/ML CONCENTRADO PARA SOLUCION PARA PERFUSION 1X1 [Suspect]
     Indication: OVARIAN CANCER
     Dosage: 150 MILLIGRAM DAILY;
     Route: 042
     Dates: start: 20120430, end: 20120430
  2. PACLITAXEL TEVA 6MG/ML CONCENTRADO PARA SOLUCION PARA PERFUSION 1 VIAL [Suspect]
     Indication: OVARIAN CANCER
     Route: 042
     Dates: start: 20120430, end: 20120430

REACTIONS (3)
  - Hypoxia [Recovered/Resolved]
  - Feeling hot [Recovered/Resolved]
  - Nausea [Recovered/Resolved]
